FAERS Safety Report 16083308 (Version 2)
Quarter: 2019Q2

REPORT INFORMATION
  Report Type: Spontaneous
  Country: US (occurrence: US)
  Receive Date: 20190318
  Receipt Date: 20190513
  Transmission Date: 20190711
  Serious: No
  Sender: FDA-Public Use
  Company Number: US-009507513-1903USA005922

PATIENT
  Sex: Female

DRUGS (8)
  1. METANX [Concomitant]
     Active Substance: LEVOMEFOLATE CALCIUM\METHYLCOBALAMIN\PYRIDOXAL PHOSPHATE ANHYDROUS
  2. FOLLISTIM [Concomitant]
     Active Substance: FOLLITROPIN
  3. DEXAMETHASONE. [Concomitant]
     Active Substance: DEXAMETHASONE
     Dosage: 0.5 MILLIGRAM, QHS
     Route: 048
     Dates: start: 20190302, end: 20190313
  4. GANIRELIX ACETATE. [Suspect]
     Active Substance: GANIRELIX ACETATE
     Indication: INFERTILITY
     Dosage: 250 MICROGRAM, QHS
     Route: 058
  5. MENOPUR [Concomitant]
     Active Substance: FOLLITROPIN\LUTEINIZING HORMONE
     Dosage: 75 IU INTERNATIONAL UNIT(S), QHS
     Route: 058
     Dates: start: 20190302, end: 20190313
  6. LUPRON [Concomitant]
     Active Substance: LEUPROLIDE ACETATE
     Dosage: 40 IU INTERNATIONAL UNIT(S), 12 HOURS,2 DOSES
     Route: 058
     Dates: start: 20190313, end: 20190314
  7. FOLLISTIM [Suspect]
     Active Substance: FOLLITROPIN
     Indication: INFERTILITY
     Dosage: 300 INTERNATIONAL UNIT, QHS
     Route: 058
     Dates: start: 20190302, end: 20190313
  8. GANIRELIX ACETATE. [Concomitant]
     Active Substance: GANIRELIX ACETATE
     Dosage: 1 KIT, QHS
     Route: 058
     Dates: start: 20190308, end: 20190313

REACTIONS (3)
  - Muscle spasms [Not Recovered/Not Resolved]
  - Anaemia [Unknown]
  - Abdominal distension [Not Recovered/Not Resolved]
